FAERS Safety Report 8226838-0 (Version None)
Quarter: 2012Q1

REPORT INFORMATION
  Report Type: 
  Country: None (occurrence: None)
  Receive Date: 20120322
  Receipt Date: 20120316
  Transmission Date: 20120608
  Serious: Yes (Life-Threatening)
  Sender: FDA-Public Use
  Company Number: US-BAYER-2012-026539

PATIENT
  Sex: Female

DRUGS (2)
  1. YASMIN [Suspect]
  2. YAZ [Suspect]

REACTIONS (6)
  - EMOTIONAL DISTRESS [None]
  - CAROTID ARTERY ANEURYSM [None]
  - PAIN [None]
  - ANHEDONIA [None]
  - CEREBROVASCULAR ACCIDENT [None]
  - INJURY [None]
